FAERS Safety Report 4786065-6 (Version None)
Quarter: 2005Q3

REPORT INFORMATION
  Report Type: 
  Country: None (occurrence: None)
  Receive Date: 20050930
  Receipt Date: 20050920
  Transmission Date: 20060218
  Serious: Yes (Other)
  Sender: FDA-Public Use
  Company Number: SGB1-2005-00339

PATIENT
  Sex: Male
  Weight: 74 kg

DRUGS (3)
  1. ANAGRELIDE HCL [Suspect]
     Indication: MYELOPROLIFERATIVE DISORDER
     Dosage: 0.5 MG, 1X/DAY:QD
     Dates: start: 20050510, end: 20050617
  2. HYDROXYUREA [Concomitant]
  3. FOLIC ACID [Concomitant]

REACTIONS (1)
  - HAEMOLYTIC ANAEMIA [None]
